FAERS Safety Report 11936645 (Version 2)
Quarter: 2016Q1

REPORT INFORMATION
  Report Type: Spontaneous
  Country: US (occurrence: US)
  Receive Date: 20160121
  Receipt Date: 20160212
  Transmission Date: 20160526
  Serious: Yes (Death)
  Sender: FDA-Public Use
  Company Number: US-SUPERNUS PHARMACEUTICALS, INC.-2016SUP00003

PATIENT
  Age: 49 Year
  Sex: Male
  Weight: 114.29 kg

DRUGS (2)
  1. AMLODIPINE [Concomitant]
     Active Substance: AMLODIPINE BESYLATE
  2. OXTELLAR XR [Suspect]
     Active Substance: OXCARBAZEPINE
     Indication: SEIZURE
     Dosage: 600 MG, 1X/DAY
     Route: 048
     Dates: start: 201503

REACTIONS (7)
  - Aspiration [Fatal]
  - Respiratory arrest [Fatal]
  - Cardiac arrest [Fatal]
  - Pneumonia [Fatal]
  - Malaise [Fatal]
  - Multiple organ dysfunction syndrome [Fatal]
  - Brain death [Fatal]

NARRATIVE: CASE EVENT DATE: 20151231
